FAERS Safety Report 10218782 (Version 2)
Quarter: 2014Q2

REPORT INFORMATION
  Report Type: Spontaneous
  Country: DE (occurrence: DE)
  Receive Date: 20140605
  Receipt Date: 20140627
  Transmission Date: 20141212
  Serious: Yes (Hospitalization, Disabling)
  Sender: FDA-Public Use
  Company Number: DE-SA-2014SA069733

PATIENT
  Age: 75 Year
  Sex: Male
  Weight: 86 kg

DRUGS (10)
  1. CLEXANE [Suspect]
     Indication: ANTICOAGULANT THERAPY
     Route: 058
     Dates: start: 20140410, end: 20140419
  2. GLIMEPIRIDE [Concomitant]
     Route: 048
  3. NITRENDIPINE [Concomitant]
     Route: 048
  4. RAMIPRIL [Concomitant]
     Route: 048
  5. MARCUMAR [Concomitant]
     Indication: ANTICOAGULANT THERAPY
     Dates: end: 201404
  6. INEGY [Concomitant]
     Route: 048
  7. ASS [Concomitant]
  8. SIMVASTATIN [Concomitant]
     Route: 048
  9. EZETROL [Concomitant]
     Route: 048
  10. PANTOPRAZOLE [Concomitant]
     Route: 048

REACTIONS (5)
  - Cerebral infarction [Recovering/Resolving]
  - Aphasia [Recovering/Resolving]
  - Monoparesis [Recovering/Resolving]
  - Hemianopia homonymous [Recovering/Resolving]
  - Memory impairment [Recovering/Resolving]
